FAERS Safety Report 23752840 (Version 3)
Quarter: 2024Q2

REPORT INFORMATION
  Report Type: Spontaneous
  Country: US (occurrence: US)
  Receive Date: 20240417
  Receipt Date: 20240517
  Transmission Date: 20240715
  Serious: No
  Sender: FDA-Public Use
  Company Number: US-PFIZER INC-202400081162

PATIENT
  Age: 12 Year
  Sex: Female
  Weight: 47.166 kg

DRUGS (1)
  1. GENOTROPIN [Suspect]
     Active Substance: SOMATROPIN
     Dosage: 1.8MG DAILY INJECTION

REACTIONS (5)
  - Wrong technique in device usage process [Unknown]
  - Device leakage [Not Recovered/Not Resolved]
  - Drug dose omission by device [Unknown]
  - Device mechanical issue [Unknown]
  - Device physical property issue [Unknown]

NARRATIVE: CASE EVENT DATE: 20240201
